FAERS Safety Report 7152127-1 (Version None)
Quarter: 2010Q4

REPORT INFORMATION
  Report Type: 
  Country: None (occurrence: None)
  Receive Date: 20101209
  Receipt Date: 20101209
  Transmission Date: 20110411
  Serious: Yes (Death)
  Sender: FDA-Public Use
  Company Number: None

PATIENT
  Sex: Male

DRUGS (3)
  1. LOVENOX [Suspect]
     Indication: HYPERTENSION
     Dosage: 110MG BID SQ
     Route: 058
  2. LOVENOX [Suspect]
     Indication: PANCREATIC CARCINOMA
     Dosage: 110MG BID SQ
     Route: 058
  3. LOVENOX [Suspect]
     Indication: PULMONARY EMBOLISM
     Dosage: 110MG BID SQ
     Route: 058

REACTIONS (1)
  - DEATH [None]
